FAERS Safety Report 18042728 (Version 1)
Quarter: 2020Q3

REPORT INFORMATION
  Report Type: Spontaneous
  Country: US (occurrence: US)
  Receive Date: 20200720
  Receipt Date: 20200720
  Transmission Date: 20201103
  Serious: Yes (Other)
  Sender: FDA-Public Use
  Company Number: US-AMGEN-USASP2020113059

PATIENT
  Sex: Female

DRUGS (1)
  1. PROLIA [Suspect]
     Active Substance: DENOSUMAB
     Indication: OSTEOPOROSIS POSTMENOPAUSAL
     Dosage: UNK
     Route: 065
     Dates: end: 2019

REACTIONS (16)
  - Fracture [Not Recovered/Not Resolved]
  - Rebound effect [Not Recovered/Not Resolved]
  - Musculoskeletal discomfort [Unknown]
  - Palpitations [Unknown]
  - Asthenia [Not Recovered/Not Resolved]
  - Lumbar vertebral fracture [Unknown]
  - Pain in jaw [Unknown]
  - Breast pain [Unknown]
  - Head banging [Unknown]
  - Intervertebral disc protrusion [Unknown]
  - Influenza [Unknown]
  - Spinal disorder [Unknown]
  - Haemangioma of bone [Unknown]
  - Feeling abnormal [Unknown]
  - Oral pain [Unknown]
  - Gastrooesophageal reflux disease [Unknown]

NARRATIVE: CASE EVENT DATE: 2018
